FAERS Safety Report 4612192-X (Version None)
Quarter: 2005Q1

REPORT INFORMATION
  Report Type: 
  Country: None (occurrence: None)
  Receive Date: 20050316
  Receipt Date: 20050310
  Transmission Date: 20050727
  Serious: Yes (Other)
  Sender: FDA-Public Use
  Company Number: 200510359BWH

PATIENT
  Age: 58 Year
  Sex: Male

DRUGS (2)
  1. CIPRO XR [Suspect]
     Indication: BIOPSY PROSTATE
     Dosage: ORAL
     Route: 048
  2. PREVACID [Concomitant]

REACTIONS (1)
  - SEPSIS [None]
